FAERS Safety Report 12651169 (Version 1)
Quarter: 2016Q3

REPORT INFORMATION
  Report Type: Spontaneous
  Country: US (occurrence: US)
  Receive Date: 20160815
  Receipt Date: 20160815
  Transmission Date: 20161109
  Serious: No
  Sender: FDA-Public Use
  Company Number: US-JAZZ-2016-US-005192

PATIENT
  Sex: Male

DRUGS (19)
  1. EXELON [Concomitant]
     Active Substance: RIVASTIGMINE TARTRATE
  2. FLECAINIDE ACETATE. [Concomitant]
     Active Substance: FLECAINIDE ACETATE
  3. METHYLPHENIDATE. [Concomitant]
     Active Substance: METHYLPHENIDATE
  4. NUVIGIL [Concomitant]
     Active Substance: ARMODAFINIL
  5. OMEPRAZOLE. [Concomitant]
     Active Substance: OMEPRAZOLE
  6. XYREM [Suspect]
     Active Substance: SODIUM OXYBATE
     Indication: NARCOLEPSY
     Dosage: 2.25 G, BID
     Route: 048
     Dates: start: 201511, end: 201602
  7. LATANOPROST. [Concomitant]
     Active Substance: LATANOPROST
  8. PROAIR HFA [Concomitant]
     Active Substance: ALBUTEROL SULFATE
  9. IBANDRONATE SODIUM. [Concomitant]
     Active Substance: IBANDRONATE SODIUM
  10. LEVOXYL [Concomitant]
     Active Substance: LEVOTHYROXINE SODIUM
  11. ASPIRIN. [Concomitant]
     Active Substance: ASPIRIN
  12. ADDERALL [Concomitant]
     Active Substance: AMPHETAMINE ASPARTATE\AMPHETAMINE SULFATE\DEXTROAMPHETAMINE SACCHARATE\DEXTROAMPHETAMINE SULFATE
  13. XYREM [Suspect]
     Active Substance: SODIUM OXYBATE
     Dosage: 3 G, BID
     Route: 048
     Dates: start: 201602
  14. NAMENDA [Concomitant]
     Active Substance: MEMANTINE HYDROCHLORIDE
  15. PRAVASTATIN. [Concomitant]
     Active Substance: PRAVASTATIN
  16. AMOX [Concomitant]
     Active Substance: UNSPECIFIED INGREDIENT
  17. BUPROPION. [Concomitant]
     Active Substance: BUPROPION
  18. DEXEDRINE [Concomitant]
     Active Substance: DEXTROAMPHETAMINE SULFATE
  19. MEGESTROL [Concomitant]
     Active Substance: MEGESTROL

REACTIONS (6)
  - Pre-existing condition improved [Unknown]
  - Condition aggravated [Not Recovered/Not Resolved]
  - Hot flush [Unknown]
  - Balance disorder [Not Recovered/Not Resolved]
  - Amnesia [Not Recovered/Not Resolved]
  - Therapeutic response unexpected [Unknown]
